FAERS Safety Report 8241717-0 (Version None)
Quarter: 2012Q1

REPORT INFORMATION
  Report Type: 
  Country: None (occurrence: None)
  Receive Date: 20120328
  Receipt Date: 20120323
  Transmission Date: 20120608
  Serious: No
  Sender: FDA-Public Use
  Company Number: US-PFIZER INC-2012076185

PATIENT
  Sex: Female
  Weight: 66.667 kg

DRUGS (11)
  1. DIAZEPAM [Suspect]
     Indication: PAIN
     Dosage: 10 MG, 3X/DAY
  2. LIDODERM [Suspect]
     Indication: BACK PAIN
  3. LUNESTA [Concomitant]
     Indication: INSOMNIA
     Dosage: 2 MG, AS NEEDED
  4. OXYCODONE HCL [Suspect]
     Indication: PAIN
     Dosage: 5 MG, 3X/DAY
  5. MORPHINE SULFATE [Suspect]
     Indication: PAIN
     Dosage: 30 MG, 2X/DAY
     Route: 048
  6. DICYCLOMINE [Concomitant]
     Indication: DYSPEPSIA
     Dosage: 20 MG, 4X/DAY
     Route: 048
  7. VENLAFAXINE [Concomitant]
     Indication: DEPRESSION
     Dosage: 50 MG, 1X/DAY
  8. RELPAX [Concomitant]
     Indication: MIGRAINE
     Dosage: UNK
  9. CHANTIX [Suspect]
     Indication: SMOKING CESSATION THERAPY
     Dosage: 0.5 MG, 1X/DAY
     Route: 048
     Dates: start: 20120301
  10. LIDODERM [Suspect]
     Indication: ARTHRALGIA
     Dosage: AS NEEDED
  11. VENLAFAXINE [Concomitant]
     Indication: ANXIETY

REACTIONS (4)
  - WEIGHT INCREASED [None]
  - TOBACCO USER [None]
  - PAIN [None]
  - ABDOMINAL DISCOMFORT [None]
